FAERS Safety Report 6101061-4 (Version None)
Quarter: 2009Q1

REPORT INFORMATION
  Report Type: 
  Country: None (occurrence: None)
  Receive Date: 20090304
  Receipt Date: 20090223
  Transmission Date: 20090719
  Serious: Yes (Disabling)
  Sender: FDA-Public Use
  Company Number: GB-BRISTOL-MYERS SQUIBB COMPANY-14397269

PATIENT
  Age: 41 Year
  Sex: Female

DRUGS (3)
  1. MITOMYCIN [Suspect]
     Indication: ANAL CANCER
     Dosage: ROUTE OF ADMINSTRATION IJ
     Route: 042
     Dates: start: 20071101, end: 20071101
  2. CISPLATIN [Suspect]
     Indication: ANAL CANCER
     Dates: start: 20071101, end: 20071101
  3. FLUOROURACIL [Suspect]
     Indication: ANAL CANCER
     Dosage: INJECTION 250 KYOWA(FLUOROURACIL)
     Dates: start: 20071101, end: 20071101

REACTIONS (1)
  - ARTHRALGIA [None]
